FAERS Safety Report 9128226 (Version 1)
Quarter: 2013Q1

REPORT INFORMATION
  Report Type: Spontaneous
  Country: US (occurrence: US)
  Receive Date: 20130125
  Receipt Date: 20130125
  Transmission Date: 20140127
  Serious: Yes (Other)
  Sender: FDA-Public Use
  Company Number: PHEH2013US001877

PATIENT
  Sex: Male

DRUGS (13)
  1. EXELON [Suspect]
  2. GLIMEPIRIDE [Concomitant]
     Dosage: 2 MG, BID
  3. LISINOPRIL [Concomitant]
     Dosage: 10 MG, BID
  4. METOPROLOL TARTRATE [Concomitant]
  5. AMIODARONE [Concomitant]
     Dosage: 200 MG
  6. DIGOXIN [Concomitant]
     Dosage: 0.025 UKN
  7. CRESTOR [Concomitant]
     Dosage: 10 MG
  8. PREDNISONE [Concomitant]
     Dosage: UNK
  9. ASPIRIN [Concomitant]
     Dosage: 81 MG
  10. VITAMIN D [Concomitant]
  11. MULTI-VIT [Concomitant]
  12. SPIRONOLACTONE [Concomitant]
  13. EXELON [Concomitant]
     Dosage: 9.5 MG, UNK

REACTIONS (2)
  - Diabetes mellitus [Unknown]
  - Diarrhoea [Unknown]
